FAERS Safety Report 9985094 (Version 1)
Quarter: 2014Q1

REPORT INFORMATION
  Report Type: Report from Study
  Country: US (occurrence: US)
  Receive Date: 20140307
  Receipt Date: 20140307
  Transmission Date: 20141002
  Serious: No
  Sender: FDA-Public Use
  Company Number: US-ABBVIE-13P-163-1184623-00

PATIENT
  Age: 51 Year
  Sex: Female

DRUGS (16)
  1. HUMIRA [Suspect]
     Indication: PSORIATIC ARTHROPATHY
     Dosage: INITIAL DOSE
     Dates: start: 20131218
  2. BUPROPION HYDROCHLORIDE [Concomitant]
     Indication: DEPRESSION
  3. NEURONTIN [Concomitant]
     Indication: NEURALGIA
  4. SYNTHROID [Concomitant]
     Indication: HYPOTHYROIDISM
  5. NEXIUM [Concomitant]
     Indication: GASTROOESOPHAGEAL REFLUX DISEASE
  6. FLEXERIL [Concomitant]
     Indication: MYALGIA
     Dosage: AS REQUIRED
  7. ESCITALOPRAM [Concomitant]
     Indication: DEPRESSION
  8. TRAMADOL HCL [Concomitant]
     Indication: ARTHRALGIA
  9. TRAZODONE [Concomitant]
     Indication: SLEEP DISORDER THERAPY
  10. ATIVAN [Concomitant]
     Indication: PANIC ATTACK
  11. VOLTAREN [Concomitant]
     Indication: PAIN
     Route: 061
  12. FIBER [Concomitant]
     Indication: PRODUCT USED FOR UNKNOWN INDICATION
  13. DOCUSATE SODIUM [Concomitant]
     Indication: CONSTIPATION
  14. VITAMIN D3 [Concomitant]
     Indication: PRODUCT USED FOR UNKNOWN INDICATION
  15. B12 [Concomitant]
     Indication: PRODUCT USED FOR UNKNOWN INDICATION
  16. HORMONE PELLETS [Concomitant]
     Indication: PRODUCT USED FOR UNKNOWN INDICATION
     Dosage: INSERTED IN AN INCISION AT THE HIP AREA

REACTIONS (3)
  - Malaise [Recovering/Resolving]
  - Cough [Recovering/Resolving]
  - Lower respiratory tract infection [Recovering/Resolving]
